FAERS Safety Report 8575881-0 (Version None)
Quarter: 2012Q3

REPORT INFORMATION
  Report Type: 
  Country: None (occurrence: None)
  Receive Date: 20120807
  Receipt Date: 20120726
  Transmission Date: 20120928
  Serious: No
  Sender: FDA-Public Use
  Company Number: US-ASTRAZENECA-2012SE53061

PATIENT
  Age: 73 Year
  Sex: Male
  Weight: 117.9 kg

DRUGS (7)
  1. NEXIUM [Suspect]
     Indication: GASTROOESOPHAGEAL REFLUX DISEASE
     Route: 048
  2. CHOLESTEROL MEDICATION [Concomitant]
  3. ALLOPURINOL [Concomitant]
  4. HIGH BLOOD PRESSURE MEDICATION [Concomitant]
  5. NEXIUM [Suspect]
     Route: 048
     Dates: start: 19970101
  6. COUMADIN [Concomitant]
  7. CRESTOR [Suspect]
     Route: 048

REACTIONS (3)
  - ATRIAL FIBRILLATION [None]
  - OFF LABEL USE [None]
  - BODY HEIGHT DECREASED [None]
